FAERS Safety Report 15082391 (Version 1)
Quarter: 2018Q2

REPORT INFORMATION
  Report Type: Report from Study
  Country: US (occurrence: US)
  Receive Date: 20180628
  Receipt Date: 20180628
  Transmission Date: 20180711
  Serious: Yes (Other)
  Sender: FDA-Public Use
  Company Number: US-PFIZER INC-2018261108

PATIENT
  Age: 45 Year
  Sex: Female

DRUGS (1)
  1. IBRANCE [Suspect]
     Active Substance: PALBOCICLIB
     Indication: BREAST CANCER
     Dosage: 125 MG, CYCLIC(21 ON, 7 OFF)
     Route: 048
     Dates: start: 20180605

REACTIONS (3)
  - Bone marrow failure [Unknown]
  - Fatigue [Unknown]
  - Asthenopia [Unknown]

NARRATIVE: CASE EVENT DATE: 201806
